FAERS Safety Report 5666420-2 (Version None)
Quarter: 2008Q1

REPORT INFORMATION
  Report Type: 
  Country: None (occurrence: None)
  Receive Date: 20080314
  Receipt Date: 20071217
  Transmission Date: 20080703
  Serious: No
  Sender: FDA-Public Use
  Company Number: US-ABBOTT-07P-163-0430584-00

PATIENT
  Sex: Female
  Weight: 59.02 kg

DRUGS (2)
  1. HUMIRA [Suspect]
     Indication: PSORIASIS
     Route: 058
     Dates: start: 20070801, end: 20071001
  2. HUMIRA [Suspect]
     Route: 058
     Dates: start: 20071204

REACTIONS (2)
  - LYMPHADENOPATHY [None]
  - VIRAL INFECTION [None]
